FAERS Safety Report 10535741 (Version 1)
Quarter: 2014Q4

REPORT INFORMATION
  Report Type: Spontaneous
  Country: US (occurrence: US)
  Receive Date: 20141022
  Receipt Date: 20141022
  Transmission Date: 20150529
  Serious: No
  Sender: FDA-Public Use
  Company Number: US-RECKITT BENCKISER PHARMACEUTICAL, INC-RB-59929-2013

PATIENT

DRUGS (3)
  1. SUBOXONE [Suspect]
     Active Substance: BUPRENORPHINE HYDROCHLORIDE\NALOXONE HYDROCHLORIDE
     Indication: PAIN
     Dosage: SUBOXONE FILM
     Route: 060
     Dates: start: 20130828, end: 20131004
  2. SUBOXONE [Suspect]
     Active Substance: BUPRENORPHINE HYDROCHLORIDE\NALOXONE HYDROCHLORIDE
     Dosage: SUBOXONE FILM; THE PATEINT WAS CUTTING THE FILM TO ACHIEVE DOSING REGIMEN OF 12 MG DAILY
     Route: 060
     Dates: start: 20131005, end: 20131012
  3. XANAX [Concomitant]
     Active Substance: ALPRAZOLAM
     Indication: ANXIETY
     Dosage: 1 MG THREE TIMES DAILY OR AS NEEDED
     Route: 060

REACTIONS (13)
  - Dyspnoea [Recovered/Resolved]
  - Underdose [Recovered/Resolved]
  - Asthma [Recovered/Resolved]
  - Arthralgia [Recovered/Resolved]
  - Oedema peripheral [Recovering/Resolving]
  - Drug ineffective for unapproved indication [Recovered/Resolved]
  - Wrong technique in drug usage process [Recovered/Resolved]
  - Wheezing [Recovered/Resolved]
  - Insomnia [Recovered/Resolved]
  - Condition aggravated [Recovered/Resolved]
  - Dysuria [Recovered/Resolved]
  - Off label use [Recovered/Resolved]
  - Hypoaesthesia [Recovered/Resolved]

NARRATIVE: CASE EVENT DATE: 20130828
